FAERS Safety Report 7942391-0 (Version None)
Quarter: 2011Q4

REPORT INFORMATION
  Report Type: 
  Country: None (occurrence: None)
  Receive Date: 20111128
  Receipt Date: 20111110
  Transmission Date: 20120403
  Serious: Yes (Other)
  Sender: FDA-Public Use
  Company Number: GB-ASTELLAS-2011EU008479

PATIENT
  Age: 53 Year
  Sex: Female

DRUGS (9)
  1. TACROLIMUS [Interacting]
     Dosage: UNK
     Route: 065
  2. ATAZANAVIR [Interacting]
     Dosage: UNK
     Route: 065
  3. RITONAVIR [Interacting]
     Dosage: UNK
     Route: 065
  4. MYFORTIC [Concomitant]
     Indication: RENAL TRANSPLANT
     Dosage: 540 MG
     Route: 065
  5. ACYCLOVIR [Concomitant]
     Indication: PROPHYLAXIS
     Dosage: UNK
     Route: 065
  6. PREDNISOLONE [Concomitant]
     Indication: RENAL TRANSPLANT
     Dosage: 20 MG
     Route: 065
  7. TENOFOVIR DISOPROXIL FUMARATE [Concomitant]
     Dosage: UNK
     Route: 065
  8. ABACAVIR [Concomitant]
     Dosage: UNK
     Route: 065
  9. TACROLIMUS [Suspect]
     Indication: RENAL TRANSPLANT
     Dosage: 1.5 MG
     Route: 065

REACTIONS (6)
  - DEPRESSED LEVEL OF CONSCIOUSNESS [None]
  - RENAL FAILURE [None]
  - MEMORY IMPAIRMENT [None]
  - IMMUNOSUPPRESSANT DRUG LEVEL INCREASED [None]
  - DRUG INTERACTION [None]
  - SOMNOLENCE [None]
